FAERS Safety Report 7654335-X (Version None)
Quarter: 2011Q3

REPORT INFORMATION
  Report Type: 
  Country: None (occurrence: None)
  Receive Date: 20110803
  Receipt Date: 20110725
  Transmission Date: 20111222
  Serious: Yes (Other)
  Sender: FDA-Public Use
  Company Number: US-SANOFI-AVENTIS-2011SA048609

PATIENT

DRUGS (2)
  1. LANTUS [Suspect]
     Route: 058
  2. LANTUS [Suspect]
     Route: 058

REACTIONS (5)
  - SWELLING [None]
  - ABASIA [None]
  - PAIN [None]
  - INFLAMMATION [None]
  - NEUROPATHY PERIPHERAL [None]
